FAERS Safety Report 7371073-1 (Version None)
Quarter: 2011Q1

REPORT INFORMATION
  Report Type: 
  Country: None (occurrence: None)
  Receive Date: 20110324
  Receipt Date: 20110310
  Transmission Date: 20110831
  Serious: Yes (Other)
  Sender: FDA-Public Use
  Company Number: PHHY2010DE11814

PATIENT
  Sex: Female

DRUGS (2)
  1. EXTAVIA [Suspect]
     Indication: MULTIPLE SCLEROSIS
     Dosage: 250 UG, QOD
     Route: 058
     Dates: start: 20091101
  2. DOCITON [Concomitant]
     Indication: TREMOR

REACTIONS (6)
  - MUSCLE SPASTICITY [None]
  - VOMITING [None]
  - BEDRIDDEN [None]
  - HYPOTONIA [None]
  - FATIGUE [None]
  - IMMOBILE [None]
